FAERS Safety Report 21095192 (Version 1)
Quarter: 2022Q3

REPORT INFORMATION
  Report Type: Spontaneous
  Country: US (occurrence: None)
  Receive Date: 20220716
  Receipt Date: 20220716
  Transmission Date: 20221027
  Serious: Yes (Disabling)
  Sender: FDA-Public Use
  Company Number: None

PATIENT
  Age: 74 Year
  Sex: Male
  Weight: 68.4 kg

DRUGS (8)
  1. FINASTERIDE [Suspect]
     Active Substance: FINASTERIDE
     Indication: Prostatomegaly
     Dosage: FREQUENCY : DAILY;?
     Route: 048
     Dates: start: 20201230, end: 20211230
  2. METOPROLOL [Concomitant]
     Active Substance: METOPROLOL
  3. lasartin [Concomitant]
  4. hydralzaline [Concomitant]
  5. FINASTERIDE [Concomitant]
     Active Substance: FINASTERIDE
  6. VITAMIN C [Concomitant]
     Active Substance: ASCORBIC ACID
  7. POTASSIUM GLUCONATE [Concomitant]
     Active Substance: POTASSIUM GLUCONATE
  8. MAGNESIUM [Concomitant]
     Active Substance: MAGNESIUM

REACTIONS (2)
  - Penile size reduced [None]
  - Erectile dysfunction [None]

NARRATIVE: CASE EVENT DATE: 20211230
